FAERS Safety Report 19794666 (Version 1)
Quarter: 2021Q3

REPORT INFORMATION
  Report Type: Spontaneous
  Country: JP (occurrence: JP)
  Receive Date: 20210907
  Receipt Date: 20210907
  Transmission Date: 20211014
  Serious: Yes (Other)
  Sender: FDA-Public Use
  Company Number: JP-TEVA-2021-JP-1949860

PATIENT
  Age: 80 Year
  Sex: Female

DRUGS (8)
  1. OLANZAPINE. [Suspect]
     Active Substance: OLANZAPINE
     Indication: DEMENTIA ALZHEIMER^S TYPE
     Route: 065
  2. MEMANTINE. [Concomitant]
     Active Substance: MEMANTINE
     Indication: DEMENTIA ALZHEIMER^S TYPE
     Route: 065
  3. TRAZODONE [Suspect]
     Active Substance: TRAZODONE HYDROCHLORIDE
     Indication: PICA
     Dosage: 50 MILLIGRAM DAILY;
     Route: 065
  4. MEMANTINE. [Concomitant]
     Active Substance: MEMANTINE
     Indication: PICA
  5. FLUVOXAMINE [Suspect]
     Active Substance: FLUVOXAMINE
     Indication: PICA
     Route: 065
  6. OLANZAPINE. [Suspect]
     Active Substance: OLANZAPINE
     Indication: PICA
  7. PEROSPIRONE [Suspect]
     Active Substance: PEROSPIRONE
     Indication: PICA
  8. PEROSPIRONE [Suspect]
     Active Substance: PEROSPIRONE
     Indication: DEMENTIA ALZHEIMER^S TYPE
     Route: 065

REACTIONS (3)
  - Extrapyramidal disorder [Unknown]
  - Off label use [Unknown]
  - Sedation complication [Unknown]
